FAERS Safety Report 5409884-1 (Version None)
Quarter: 2007Q3

REPORT INFORMATION
  Report Type: 
  Country: None (occurrence: None)
  Receive Date: 20070807
  Receipt Date: 20070726
  Transmission Date: 20080115
  Serious: Yes (Hospitalization)
  Sender: FDA-Public Use
  Company Number: S07-FRA-03288-01

PATIENT
  Age: 82 Year
  Sex: Female

DRUGS (2)
  1. EBIXA                            (MEMANTINE HYDROCHLORIDE) [Suspect]
     Indication: DEMENTIA ALZHEIMER'S TYPE
  2. OMEPRAZOLE [Suspect]

REACTIONS (6)
  - BETA HAEMOLYTIC STREPTOCOCCAL INFECTION [None]
  - ECZEMA IMPETIGINOUS [None]
  - EOSINOPHIL COUNT INCREASED [None]
  - PROTEUS INFECTION [None]
  - STAPHYLOCOCCAL INFECTION [None]
  - URTICARIA [None]
